FAERS Safety Report 5813155-9 (Version None)
Quarter: 2008Q3

REPORT INFORMATION
  Report Type: 
  Country: None (occurrence: None)
  Receive Date: 20080717
  Receipt Date: 20080307
  Transmission Date: 20090109
  Serious: No
  Sender: FDA-Public Use
  Company Number: A0713778A

PATIENT
  Age: 35 Year
  Sex: Male

DRUGS (1)
  1. NICORETTE [Suspect]
     Indication: SMOKING CESSATION THERAPY
     Dates: start: 20071225, end: 20080301

REACTIONS (1)
  - VISION BLURRED [None]
